FAERS Safety Report 9998047 (Version 4)
Quarter: 2014Q4

REPORT INFORMATION
  Report Type: Spontaneous
  Country: IE (occurrence: IE)
  Receive Date: 20140311
  Receipt Date: 20141201
  Transmission Date: 20150529
  Serious: Yes (Other)
  Sender: FDA-Public Use
  Company Number: PHFR2014IE002047

PATIENT
  Age: 45 Year
  Sex: Male
  Weight: 98 kg

DRUGS (1)
  1. CLOZARIL [Suspect]
     Active Substance: CLOZAPINE
     Indication: SCHIZOPHRENIA
     Dosage: 300 MG, QD
     Route: 048
     Dates: start: 20010701

REACTIONS (4)
  - Urinary tract disorder [Unknown]
  - Neutrophil count increased [Recovered/Resolved]
  - Gout [Recovering/Resolving]
  - White blood cell count increased [Recovered/Resolved]

NARRATIVE: CASE EVENT DATE: 20140218
